FAERS Safety Report 7349419 (Version 7)
Quarter: 2014Q3

REPORT INFORMATION
  Report Type: Report from Study
  Country: US (occurrence: US)
  Receive Date: 20100409
  Receipt Date: 20140806
  Transmission Date: 20150326
  Serious: Yes (Hospitalization)
  Sender: FDA-Public Use
  Company Number: US-BIOGENIDEC-2010BI010945

PATIENT
  Age: 47 Year
  Sex: Female

DRUGS (1)
  1. TYSABRI [Suspect]
     Active Substance: NATALIZUMAB
     Indication: MULTIPLE SCLEROSIS
     Route: 042
     Dates: start: 20070504

REACTIONS (35)
  - Diplopia [Unknown]
  - Sepsis [Recovered/Resolved]
  - CSF volume increased [Not Recovered/Not Resolved]
  - Blister [Recovered/Resolved]
  - Incoherent [Not Recovered/Not Resolved]
  - Multiple sclerosis [Not Recovered/Not Resolved]
  - Fall [Unknown]
  - Weight decreased [Recovered/Resolved]
  - Optic neuritis [Unknown]
  - Bladder dysfunction [Not Recovered/Not Resolved]
  - Rash generalised [Recovered/Resolved]
  - Tremor [Unknown]
  - Anaemia [Unknown]
  - Migraine [Not Recovered/Not Resolved]
  - Cyst [Unknown]
  - Malaise [Recovered/Resolved]
  - Pleurisy [Not Recovered/Not Resolved]
  - Visual acuity reduced [Unknown]
  - Bronchitis [Recovered/Resolved]
  - Scoliosis [Not Recovered/Not Resolved]
  - Decreased appetite [Unknown]
  - Headache [Not Recovered/Not Resolved]
  - Fatigue [Unknown]
  - Pneumonia [Unknown]
  - Laceration [Unknown]
  - Gait disturbance [Not Recovered/Not Resolved]
  - Kyphosis [Unknown]
  - General symptom [Unknown]
  - Chronic obstructive pulmonary disease [Unknown]
  - Crying [Not Recovered/Not Resolved]
  - Corneal degeneration [Unknown]
  - Memory impairment [Unknown]
  - Pain [Unknown]
  - Functional gastrointestinal disorder [Not Recovered/Not Resolved]
  - Urinary tract infection [Unknown]

NARRATIVE: CASE EVENT DATE: 200705
